FAERS Safety Report 4942833-9 (Version None)
Quarter: 2006Q1

REPORT INFORMATION
  Report Type: 
  Country: None (occurrence: None)
  Receive Date: 20060309
  Receipt Date: 20060222
  Transmission Date: 20060701
  Serious: Yes (Death)
  Sender: FDA-Public Use
  Company Number: T06-GER-00418-01

PATIENT
  Age: 99 Year
  Sex: Female
  Weight: 33 kg

DRUGS (9)
  1. MEMANTINE HCL [Suspect]
     Indication: DEMENTIA ALZHEIMER'S TYPE
     Dosage: 25 DROPS QD PO
     Route: 048
     Dates: start: 20050617, end: 20050710
  2. MEMANTINE HCL [Suspect]
     Indication: DEMENTIA ALZHEIMER'S TYPE
     Dosage: 25 DROPS BID PO
     Route: 048
     Dates: start: 20050420, end: 20050617
  3. MEMANTINE HCL [Suspect]
     Indication: DEMENTIA ALZHEIMER'S TYPE
     Dosage: 15 DROPS BID PO
     Route: 048
     Dates: start: 20050301, end: 20050420
  4. MEMANTINE HCL [Suspect]
     Indication: DEMENTIA ALZHEIMER'S TYPE
     Dosage: 15 DROPS BID PO
     Route: 048
     Dates: start: 20050301, end: 20050301
  5. MEMANTINE HCL [Suspect]
     Indication: DEMENTIA ALZHEIMER'S TYPE
     Dosage: 15 DROPS BID PO
     Route: 048
     Dates: start: 20050301, end: 20050301
  6. MEMANTINE HCL [Suspect]
     Indication: DEMENTIA ALZHEIMER'S TYPE
     Dosage: 15 DROPS QD PO
     Route: 048
     Dates: start: 20050301, end: 20050301
  7. MEMANTINE HCL [Suspect]
     Indication: DEMENTIA ALZHEIMER'S TYPE
     Dosage: 2.5 MG BID PO
     Route: 048
     Dates: start: 20050215, end: 20050201
  8. MEMANTINE HCL [Suspect]
     Indication: DEMENTIA ALZHEIMER'S TYPE
     Dosage: 5 MG BID PO
     Route: 048
     Dates: start: 20050201, end: 20050301
  9. CHOLINESTERASE INHIBITOR [Concomitant]

REACTIONS (2)
  - GENERAL PHYSICAL HEALTH DETERIORATION [None]
  - PNEUMONIA [None]
